FAERS Safety Report 6225659-8 (Version None)
Quarter: 2009Q2

REPORT INFORMATION
  Report Type: 
  Country: None (occurrence: None)
  Receive Date: 20090612
  Receipt Date: 20090428
  Transmission Date: 20091009
  Serious: No
  Sender: FDA-Public Use
  Company Number: US-ABBOTT-09P-163-0570702-00

PATIENT
  Sex: Female

DRUGS (6)
  1. HUMIRA [Suspect]
     Indication: PSORIASIS
     Route: 058
     Dates: start: 20080501
  2. HUMIRA [Suspect]
     Indication: PSORIATIC ARTHROPATHY
  3. PENTASA [Concomitant]
     Indication: CROHN'S DISEASE
     Dosage: DAILY
  4. SYNTHROID [Concomitant]
     Indication: AUTOIMMUNE THYROIDITIS
     Dosage: DAILY
  5. IMITREX [Concomitant]
     Indication: MIGRAINE
     Dosage: AS REQUIRED
  6. VALIUM [Concomitant]
     Indication: INSOMNIA
     Dosage: AS REQUIRED

REACTIONS (3)
  - HERPES ZOSTER [None]
  - PAIN [None]
  - SKIN ULCER [None]
